FAERS Safety Report 23969363 (Version 2)
Quarter: 2024Q3

REPORT INFORMATION
  Report Type: Spontaneous
  Country: US (occurrence: None)
  Receive Date: 20240612
  Receipt Date: 20240709
  Transmission Date: 20241016
  Serious: No
  Sender: ASTRAZENECA
  Company Number: 2024A133428

PATIENT
  Sex: Female

DRUGS (2)
  1. LOKELMA [Suspect]
     Active Substance: SODIUM ZIRCONIUM CYCLOSILICATE
     Dosage: 5.0G UNKNOWN
     Route: 048
     Dates: start: 20240501
  2. LOKELMA [Suspect]
     Active Substance: SODIUM ZIRCONIUM CYCLOSILICATE
     Dosage: 10.0G UNKNOWN
     Route: 048
     Dates: start: 20240501

REACTIONS (5)
  - Blood potassium abnormal [Unknown]
  - Blood potassium increased [Unknown]
  - Incorrect dose administered [Unknown]
  - Obsessive-compulsive disorder [Unknown]
  - Wrong technique in product usage process [Unknown]
